FAERS Safety Report 4770839-1 (Version None)
Quarter: 2005Q3

REPORT INFORMATION
  Report Type: 
  Country: None (occurrence: None)
  Receive Date: 20050915
  Receipt Date: 20050908
  Transmission Date: 20060218
  Serious: Yes (Hospitalization)
  Sender: FDA-Public Use
  Company Number: GB-GLAXOSMITHKLINE-B0393280A

PATIENT
  Age: 70 Year
  Sex: Female
  Weight: 82.55 kg

DRUGS (5)
  1. AVANDAMET [Suspect]
     Indication: DIABETES MELLITUS
     Dosage: 2MG TWICE PER DAY
     Route: 048
     Dates: start: 20041223, end: 20050823
  2. CO-TENIDONE [Concomitant]
     Indication: HYPERTENSION
     Dosage: 1UNIT IN THE MORNING
     Route: 048
  3. ADALAT [Concomitant]
     Indication: HYPERTENSION
     Dosage: 10MG TWICE PER DAY
     Route: 048
  4. DIPYRIDAMOLE [Concomitant]
     Indication: PROPHYLAXIS
     Dosage: 100MG THREE TIMES PER DAY
     Route: 048
  5. GTN [Concomitant]
     Indication: ANGINA PECTORIS
     Route: 060

REACTIONS (5)
  - ANOREXIA [None]
  - CHROMATURIA [None]
  - CIRCULATORY COLLAPSE [None]
  - JAUNDICE [None]
  - WEIGHT DECREASED [None]
